FAERS Safety Report 23671624 (Version 1)
Quarter: 2024Q1

REPORT INFORMATION
  Report Type: Spontaneous
  Country: US (occurrence: US)
  Receive Date: 20240326
  Receipt Date: 20240326
  Transmission Date: 20240409
  Serious: No
  Sender: FDA-Public Use
  Company Number: US-E2BLSMVVAL-SPO/USA/24/0004391

PATIENT
  Age: 15 Year

DRUGS (1)
  1. ACCUTANE [Suspect]
     Active Substance: ISOTRETINOIN
     Indication: Product used for unknown indication
     Route: 065
     Dates: start: 20240216

REACTIONS (5)
  - Xerosis [Unknown]
  - Lip dry [Unknown]
  - Headache [Unknown]
  - Epistaxis [Unknown]
  - Depression [Unknown]

NARRATIVE: CASE EVENT DATE: 20240310
